FAERS Safety Report 4743770-5 (Version None)
Quarter: 2005Q3

REPORT INFORMATION
  Report Type: 
  Country: None (occurrence: None)
  Receive Date: 20050809
  Receipt Date: 20050513
  Transmission Date: 20060218
  Serious: Yes (Hospitalization)
  Sender: FDA-Public Use
  Company Number: 2005FR-00179

PATIENT
  Age: 74 Year
  Sex: Female

DRUGS (7)
  1. ETODOLAC [Suspect]
     Indication: ARTHRITIS
     Dosage: 600 MG OM
     Route: 048
     Dates: start: 20050101, end: 20050301
  2. AMLODIPINE [Concomitant]
  3. AZATHIOPRINE [Concomitant]
  4. PREDNISOLONE [Concomitant]
  5. SIMVASTATIN [Concomitant]
  6. ASPIRIN [Concomitant]
  7. FUROSEMIDE [Concomitant]

REACTIONS (3)
  - ABDOMINAL PAIN [None]
  - HAEMATEMESIS [None]
  - HAEMATOCHEZIA [None]
